FAERS Safety Report 10047735 (Version 1)
Quarter: 2014Q1

REPORT INFORMATION
  Report Type: Spontaneous
  Country: US (occurrence: None)
  Receive Date: 20140328
  Receipt Date: 20140328
  Transmission Date: 20141002
  Serious: Yes (Hospitalization)
  Sender: FDA-Public Use
  Company Number: DL2014-0277

PATIENT
  Age: 18 Year
  Sex: Female

DRUGS (2)
  1. MIFEPRISTONE [Suspect]
     Indication: ABORTION INDUCED
     Route: 048
     Dates: start: 20140131
  2. MISOPROSTOL TABLETS, 200 MCG [Suspect]
     Route: 002
     Dates: start: 20140201

REACTIONS (3)
  - Pyrexia [None]
  - Chills [None]
  - Endometritis [None]
